FAERS Safety Report 17058894 (Version 1)
Quarter: 2019Q4

REPORT INFORMATION
  Report Type: Spontaneous
  Country: NO (occurrence: NO)
  Receive Date: 20191121
  Receipt Date: 20191121
  Transmission Date: 20200122
  Serious: Yes (Death, Other)
  Sender: FDA-Public Use
  Company Number: NO-MYLANLABS-2019M1110906

PATIENT
  Age: 53 Year
  Sex: Male

DRUGS (10)
  1. VINBLASTIN [Suspect]
     Active Substance: VINBLASTINE
     Indication: TESTICULAR GERM CELL TUMOUR
     Dosage: CUMULATIVE DOSE 112 MG
  2. CYCLOPHOSPHAMIDE. [Suspect]
     Active Substance: CYCLOPHOSPHAMIDE
     Dosage: UNK
  3. CCNU [Suspect]
     Active Substance: LOMUSTINE
     Indication: TESTICULAR GERM CELL TUMOUR
     Dosage: CYCLIC (CUMULATIVE DOSE 1160 MG)
  4. ADRIAMYCIN [Suspect]
     Active Substance: DOXORUBICIN HYDROCHLORIDE
     Indication: TESTICULAR GERM CELL TUMOUR
     Dosage: 50 MG/M2, CYCLIC (DAY 2)
  5. CYCLOPHOSPHAMIDE. [Suspect]
     Active Substance: CYCLOPHOSPHAMIDE
     Indication: TESTICULAR GERM CELL TUMOUR
     Dosage: 500 MG/M2, CYCLIC (DAY 2)
  6. VINCRISTINE SULFATE. [Suspect]
     Active Substance: VINCRISTINE SULFATE
     Indication: TESTICULAR GERM CELL TUMOUR
     Dosage: 1.50 MG/M2, CYCLIC (MAX. 2MH)
  7. CISPLATIN. [Suspect]
     Active Substance: CISPLATIN
     Indication: TESTICULAR GERM CELL TUMOUR
     Dosage: CUMULATIVE DOSE 1210 MG
  8. CISPLATIN. [Suspect]
     Active Substance: CISPLATIN
     Dosage: 1320 MILLIGRAM, CYCLE
  9. BLEOMYCIN [Suspect]
     Active Substance: BLEOMYCIN SULFATE
     Indication: TESTICULAR GERM CELL TUMOUR
     Dosage: 1,UNK CYCLE
  10. ADRIAMYCIN [Suspect]
     Active Substance: DOXORUBICIN HYDROCHLORIDE
     Dosage: UNK, CYCLE

REACTIONS (6)
  - Peptic ulcer [Fatal]
  - Abnormal faeces [Fatal]
  - Cardiac failure [Unknown]
  - Second primary malignancy [Fatal]
  - Myelofibrosis [Fatal]
  - Polyneuropathy [Unknown]
